FAERS Safety Report 15530343 (Version 3)
Quarter: 2018Q4

REPORT INFORMATION
  Report Type: Spontaneous
  Country: US (occurrence: US)
  Receive Date: 20181018
  Receipt Date: 20181227
  Transmission Date: 20190205
  Serious: No
  Sender: FDA-Public Use
  Company Number: US-MYLANLABS-2018M1074190

PATIENT

DRUGS (2)
  1. HEPARIN SODIUM INJECTION USP [Suspect]
     Active Substance: HEPARIN SODIUM
     Dosage: UNK
     Route: 065
  2. HEPARIN SODIUM INJECTION USP [Suspect]
     Active Substance: HEPARIN SODIUM
     Indication: POSTOPERATIVE CARE
     Dosage: UNK
     Route: 065

REACTIONS (3)
  - Drug effect increased [Unknown]
  - International normalised ratio increased [Unknown]
  - Product substitution issue [Unknown]
